FAERS Safety Report 10595768 (Version 2)
Quarter: 2015Q1

REPORT INFORMATION
  Report Type: Spontaneous
  Country: US (occurrence: US)
  Receive Date: 20141120
  Receipt Date: 20150217
  Transmission Date: 20150720
  Serious: No
  Sender: FDA-Public Use
  Company Number: US-AMARIN PHARMA, INC.-2014AMR000066

PATIENT
  Sex: Male

DRUGS (1)
  1. VASCEPA [Suspect]
     Active Substance: ETHYL ICOSAPENTATE
     Indication: CARDIAC DISORDER
     Dosage: SOMETIMES 2 , SOMETIMES 4
     Route: 065

REACTIONS (1)
  - Arthralgia [Not Recovered/Not Resolved]
